FAERS Safety Report 24895560 (Version 2)
Quarter: 2025Q2

REPORT INFORMATION
  Report Type: Report from Study
  Country: US (occurrence: US)
  Receive Date: 20250128
  Receipt Date: 20250513
  Transmission Date: 20250716
  Serious: No
  Sender: SUNOVION
  Company Number: US-SUMITOMO PHARMA SWITZERLAND GMBH-2025SPA000576

PATIENT

DRUGS (1)
  1. ORGOVYX [Suspect]
     Active Substance: RELUGOLIX
     Indication: Prostate cancer
     Dosage: 120 MG, QD
     Route: 048
     Dates: start: 20240220

REACTIONS (5)
  - Joint range of motion decreased [Unknown]
  - Myalgia [Unknown]
  - Bone pain [Unknown]
  - Incorrect dose administered [Unknown]
  - Product dose omission issue [Unknown]
